FAERS Safety Report 6230624-0 (Version None)
Quarter: 2009Q2

REPORT INFORMATION
  Report Type: 
  Country: None (occurrence: None)
  Receive Date: 20090615
  Receipt Date: 20090508
  Transmission Date: 20091009
  Serious: No
  Sender: FDA-Public Use
  Company Number: US-ABBOTT-09P-163-0572869-00

PATIENT

DRUGS (2)
  1. TRILIPIX [Suspect]
     Indication: DRUG USE FOR UNKNOWN INDICATION
  2. CRESTOR [Concomitant]
     Indication: DRUG USE FOR UNKNOWN INDICATION

REACTIONS (2)
  - BLOOD CREATINE PHOSPHOKINASE INCREASED [None]
  - MYOPATHY [None]
